FAERS Safety Report 7397514-1 (Version None)
Quarter: 2011Q2

REPORT INFORMATION
  Report Type: 
  Country: None (occurrence: None)
  Receive Date: 20110401
  Receipt Date: 20110401
  Transmission Date: 20111010
  Serious: Yes (Hospitalization)
  Sender: FDA-Public Use
  Company Number: None

PATIENT
  Age: 67 Year
  Sex: Male
  Weight: 103.4201 kg

DRUGS (1)
  1. ULORIC [Suspect]
     Indication: GOUT
     Dosage: 40MG ONCE PO
     Route: 048
     Dates: start: 20110121

REACTIONS (10)
  - FATIGUE [None]
  - MYALGIA [None]
  - CHILLS [None]
  - JAUNDICE [None]
  - MALAISE [None]
  - PYREXIA [None]
  - HEADACHE [None]
  - HICCUPS [None]
  - URINARY INCONTINENCE [None]
  - HEPATIC ENZYME INCREASED [None]
